FAERS Safety Report 24377988 (Version 1)
Quarter: 2024Q3

REPORT INFORMATION
  Report Type: Spontaneous
  Country: BE (occurrence: BE)
  Receive Date: 20240930
  Receipt Date: 20240930
  Transmission Date: 20241017
  Serious: Yes (Death, Other)
  Sender: Steriscience PTE
  Company Number: BE-STERISCIENCE B.V.-2024-ST-001477

PATIENT
  Age: 66 Year
  Sex: Female

DRUGS (8)
  1. SODIUM BICARBONATE [Suspect]
     Active Substance: SODIUM BICARBONATE
     Indication: Metabolic acidosis
     Dosage: 100 MILLILITER
     Route: 065
  2. SODIUM BICARBONATE [Suspect]
     Active Substance: SODIUM BICARBONATE
     Dosage: 700 MILLILITER
     Route: 065
  3. PANTOPRAZOLE [Suspect]
     Active Substance: PANTOPRAZOLE
     Indication: Product used for unknown indication
     Dosage: 80 MILLIGRAM BOLUS
     Route: 065
  4. PANTOPRAZOLE [Suspect]
     Active Substance: PANTOPRAZOLE
     Dosage: 8 MILLIGRAM, QH CONTINUOUS INFUSION
     Route: 065
  5. NOREPINEPHRINE [Suspect]
     Active Substance: NOREPINEPHRINE\NOREPINEPHRINE BITARTRATE
     Indication: Product used for unknown indication
     Dosage: UNK INFUSION
     Route: 065
  6. CEFUROXIME [Suspect]
     Active Substance: CEFUROXIME
     Indication: Product used for unknown indication
     Dosage: 1.5 GRAM
     Route: 065
  7. POTASSIUM CHLORIDE [Suspect]
     Active Substance: POTASSIUM CHLORIDE
     Indication: Product used for unknown indication
     Dosage: 40 MILLIEQUIVALENT
     Route: 065
  8. PROPOFOL [Suspect]
     Active Substance: PROPOFOL
     Indication: Product used for unknown indication
     Dosage: 140 MILLIGRAM, QH
     Route: 065

REACTIONS (10)
  - Condition aggravated [Fatal]
  - Drug ineffective [Fatal]
  - Pneumoperitoneum [Fatal]
  - Peritonitis [Fatal]
  - Necrosis [Fatal]
  - Gastric perforation [Fatal]
  - Ascites [Fatal]
  - Oesophageal wall hypertrophy [Fatal]
  - Pleural effusion [Fatal]
  - Gastrointestinal wall thickening [Fatal]
